FAERS Safety Report 18152874 (Version 2)
Quarter: 2020Q3

REPORT INFORMATION
  Report Type: Spontaneous
  Country: US (occurrence: US)
  Receive Date: 20200814
  Receipt Date: 20200929
  Transmission Date: 20201103
  Serious: Yes (Other)
  Sender: FDA-Public Use
  Company Number: US-NOVOPROD-746055

PATIENT
  Sex: Female

DRUGS (1)
  1. LEVEMIR [Suspect]
     Active Substance: INSULIN DETEMIR
     Indication: TYPE 2 DIABETES MELLITUS
     Dosage: 36 IU, QD
     Route: 058

REACTIONS (4)
  - Gait disturbance [Unknown]
  - Injection site mass [Not Recovered/Not Resolved]
  - Limb discomfort [Unknown]
  - Neoplasm malignant [Unknown]
